FAERS Safety Report 22209640 (Version 1)
Quarter: 2023Q2

REPORT INFORMATION
  Report Type: Spontaneous
  Country: US (occurrence: US)
  Receive Date: 20230414
  Receipt Date: 20230414
  Transmission Date: 20230721
  Serious: No
  Sender: FDA-Public Use
  Company Number: US-Accord-266553

PATIENT
  Age: 55 Year
  Sex: Male
  Weight: 90.72 kg

DRUGS (11)
  1. LEVETIRACETAM [Suspect]
     Active Substance: LEVETIRACETAM
     Indication: Headache
     Dosage: STRENGTH: 500 MG?DOSE: 500MG PER DAY
     Dates: start: 20220608, end: 20220610
  2. MYRBETRIQ [Concomitant]
     Active Substance: MIRABEGRON
  3. NORCO [Concomitant]
     Active Substance: ACETAMINOPHEN\HYDROCODONE BITARTRATE
  4. HYDROXYZINE [Concomitant]
     Active Substance: HYDROXYZINE HYDROCHLORIDE
  5. LANTUS [Concomitant]
     Active Substance: INSULIN GLARGINE
  6. HUMALOG [Concomitant]
     Active Substance: INSULIN LISPRO
  7. COREG [Concomitant]
     Active Substance: CARVEDILOL
  8. TIZANIDINE [Concomitant]
     Active Substance: TIZANIDINE
  9. ZETIA [Concomitant]
     Active Substance: EZETIMIBE
  10. CHLORTHALIDONE [Concomitant]
     Active Substance: CHLORTHALIDONE
  11. LEVETIRACETAM [Suspect]
     Active Substance: LEVETIRACETAM
     Indication: Headache
     Dosage: STRENGTH: 500MG?DOSE: 250MG PER DAY (1/2 A 500MG TABLET)
     Dates: start: 20220601, end: 20220607

REACTIONS (6)
  - Pain in extremity [Recovering/Resolving]
  - Hypoaesthesia [Recovering/Resolving]
  - Motor dysfunction [Recovering/Resolving]
  - Drug ineffective [Unknown]
  - Off label use [Unknown]
  - Wrong technique in product usage process [Unknown]

NARRATIVE: CASE EVENT DATE: 20220609
